FAERS Safety Report 7958124-8 (Version None)
Quarter: 2011Q4

REPORT INFORMATION
  Report Type: 
  Country: None (occurrence: None)
  Receive Date: 20111205
  Receipt Date: 20111201
  Transmission Date: 20120403
  Serious: Yes (Death, Other)
  Sender: FDA-Public Use
  Company Number: JP-B.I. PHARMACEUTICALS,INC./RIDGEFIELD-2011-BP-27228NB

PATIENT
  Age: 87 Year
  Sex: Male

DRUGS (5)
  1. BROTIZOLAN [Concomitant]
     Dosage: 0.25 MG
     Route: 048
  2. SEROQUEL [Concomitant]
     Dosage: 12.5 MG
     Route: 048
  3. DIGOXIN [Concomitant]
     Dosage: 0.1 MG
     Route: 048
  4. PRADAXA [Suspect]
     Dosage: 110 MG
     Route: 048
  5. LANSOPRAZOLE [Concomitant]
     Dosage: 15 MG
     Route: 048

REACTIONS (3)
  - PNEUMONIA [None]
  - VOMITING [None]
  - WHITE BLOOD CELL COUNT DECREASED [None]
